FAERS Safety Report 6883709-X (Version None)
Quarter: 2010Q3

REPORT INFORMATION
  Report Type: 
  Country: None (occurrence: None)
  Receive Date: 20100729
  Receipt Date: 20100723
  Transmission Date: 20110219
  Serious: Yes (Hospitalization)
  Sender: FDA-Public Use
  Company Number: A0872124A

PATIENT
  Age: 87 Year
  Sex: Male

DRUGS (4)
  1. VOTRIENT [Suspect]
     Indication: RENAL CELL CARCINOMA
     Dosage: 800MG PER DAY
     Route: 048
     Dates: start: 20100604
  2. COUMADIN [Concomitant]
  3. THYROID MEDICATION [Concomitant]
  4. BLOOD PRESSURE MEDICATION [Concomitant]

REACTIONS (4)
  - ASTHENIA [None]
  - FATIGUE [None]
  - HICCUPS [None]
  - NAUSEA [None]
